FAERS Safety Report 8920585 (Version 1)
Quarter: 2012Q4

REPORT INFORMATION
  Report Type: 
  Country: US (occurrence: US)
  Receive Date: 20121121
  Receipt Date: 20121121
  Transmission Date: 20130627
  Serious: No
  Sender: FDA-Public Use
  Company Number: US-B.I. PHARMACEUTICALS,INC./RIDGEFIELD-2012-BI-00919BP

PATIENT
  Age: 50 Year
  Sex: Male

DRUGS (5)
  1. ATROVENT [Suspect]
     Indication: CHRONIC OBSTRUCTIVE PULMONARY DISEASE
     Route: 055
  2. ATROVENT [Suspect]
     Indication: ASTHMA
  3. SPIRIVA [Concomitant]
  4. PROVENTIL [Concomitant]
  5. SYMBICORT [Concomitant]

REACTIONS (1)
  - Oedema peripheral [Unknown]
